FAERS Safety Report 9696306 (Version 2)
Quarter: 2013Q4

REPORT INFORMATION
  Report Type: Report from Study
  Country: US (occurrence: US)
  Receive Date: 20131119
  Receipt Date: 20131119
  Transmission Date: 20140711
  Serious: Yes (Other)
  Sender: FDA-Public Use
  Company Number: US-ABBVIE-12P-163-0986916-00

PATIENT
  Age: 39 Year
  Sex: Female
  Weight: 59.02 kg

DRUGS (3)
  1. HUMIRA [Suspect]
     Indication: PSORIASIS
     Route: 058
     Dates: start: 20110910
  2. HUMIRA [Suspect]
     Route: 058
     Dates: start: 20120523
  3. DERMASMOOTHE SCALP OIL [Concomitant]
     Indication: PSORIASIS
     Dates: start: 201106

REACTIONS (1)
  - Angle closure glaucoma [Not Recovered/Not Resolved]
